FAERS Safety Report 15989914 (Version 1)
Quarter: 2019Q1

REPORT INFORMATION
  Report Type: Report from Study
  Country: CO (occurrence: CO)
  Receive Date: 20190221
  Receipt Date: 20190221
  Transmission Date: 20190418
  Serious: Yes (Other)
  Sender: FDA-Public Use
  Company Number: CO-ASTELLAS-2018US054134

PATIENT
  Age: 52 Year
  Sex: Female
  Weight: 38 kg

DRUGS (4)
  1. MYCOPHENOLATE [Suspect]
     Active Substance: MYCOPHENOLIC ACID
     Dosage: 1 CAPSULE OF 360 MG AT MORNING AND 1 CAPSULE OF 180 MG AT NIGHT
     Route: 048
  2. TACROLIMUS. [Suspect]
     Active Substance: TACROLIMUS
     Indication: RENAL TRANSPLANT
     Dosage: 5 MG (5 CAPSULES OF 1MG), ONCE DAILY
     Route: 048
     Dates: start: 20150619, end: 20181130
  3. MYCOPHENOLATE [Suspect]
     Active Substance: MYCOPHENOLIC ACID
     Indication: TRANSPLANT
     Route: 048
     Dates: start: 20150619
  4. CARVEDILOL. [Concomitant]
     Active Substance: CARVEDILOL
     Indication: TRANSPLANT
     Route: 048

REACTIONS (6)
  - Blood creatinine increased [Not Recovered/Not Resolved]
  - Blood glucose increased [Recovering/Resolving]
  - Underweight [Unknown]
  - Localised infection [Recovering/Resolving]
  - Diarrhoea [Unknown]
  - Blood creatinine increased [Not Recovered/Not Resolved]

NARRATIVE: CASE EVENT DATE: 20181130
